FAERS Safety Report 14626846 (Version 1)
Quarter: 2018Q1

REPORT INFORMATION
  Report Type: Spontaneous
  Country: US (occurrence: US)
  Receive Date: 20180312
  Receipt Date: 20180312
  Transmission Date: 20180509
  Serious: No
  Sender: FDA-Public Use
  Company Number: US-BAYER-2018-044970

PATIENT
  Age: 60 Year
  Sex: Female
  Weight: 57.96 kg

DRUGS (4)
  1. SYNTHROID [Concomitant]
     Active Substance: LEVOTHYROXINE SODIUM
  2. IBUPROFEN. [Concomitant]
     Active Substance: IBUPROFEN
  3. CLARITIN [Suspect]
     Active Substance: LORATADINE
     Indication: MAST CELL ACTIVATION SYNDROME
     Dosage: UNK
     Route: 048
     Dates: start: 20180303
  4. CLARITIN [Suspect]
     Active Substance: LORATADINE
     Indication: HYPERSENSITIVITY

REACTIONS (5)
  - Urticaria [Recovering/Resolving]
  - Blood pressure fluctuation [Not Recovered/Not Resolved]
  - Product use in unapproved indication [Unknown]
  - Off label use [Unknown]
  - Heart rate increased [Not Recovered/Not Resolved]

NARRATIVE: CASE EVENT DATE: 20180303
